FAERS Safety Report 22388263 (Version 1)
Quarter: 2023Q2

REPORT INFORMATION
  Report Type: Spontaneous
  Country: US (occurrence: US)
  Receive Date: 20230531
  Receipt Date: 20230531
  Transmission Date: 20230722
  Serious: Yes (Hospitalization, Other)
  Sender: FDA-Public Use
  Company Number: US-CPL-003429

PATIENT
  Age: 75 Year
  Sex: Female

DRUGS (1)
  1. HYDRALAZINE [Suspect]
     Active Substance: HYDRALAZINE HYDROCHLORIDE
     Indication: Hypertension
     Dosage: 100 MG BID

REACTIONS (5)
  - Vasculitis [Unknown]
  - Pulmonary haemorrhage [Unknown]
  - Glomerulonephritis rapidly progressive [Unknown]
  - Renal tubular injury [Unknown]
  - Kidney fibrosis [Unknown]
